FAERS Safety Report 14268771 (Version 1)
Quarter: 2017Q4

REPORT INFORMATION
  Report Type: Spontaneous
  Country: US (occurrence: US)
  Receive Date: 20171211
  Receipt Date: 20171211
  Transmission Date: 20180321
  Serious: Yes (Other)
  Sender: FDA-Public Use
  Company Number: US-JNJFOC-20151105293

PATIENT
  Age: 44 Year
  Sex: Male

DRUGS (2)
  1. RISPERDAL [Suspect]
     Active Substance: RISPERIDONE
     Indication: SCHIZOPHRENIA
     Dosage: 3 MG- 4 MG
     Route: 048
     Dates: start: 2009, end: 2014
  2. RISPERIDONE. [Suspect]
     Active Substance: RISPERIDONE
     Indication: PRODUCT USED FOR UNKNOWN INDICATION
     Dosage: 3 MG- 4 MG
     Route: 048

REACTIONS (6)
  - Obesity [Unknown]
  - Cardiac disorder [Unknown]
  - Hyperprolactinaemia [Unknown]
  - Salivary hypersecretion [Unknown]
  - Gynaecomastia [Recovering/Resolving]
  - Galactorrhoea [Unknown]

NARRATIVE: CASE EVENT DATE: 20110911
